FAERS Safety Report 5800523-4 (Version None)
Quarter: 2008Q3

REPORT INFORMATION
  Report Type: 
  Country: None (occurrence: None)
  Receive Date: 20080701
  Receipt Date: 20080616
  Transmission Date: 20090109
  Serious: Yes (Death)
  Sender: FDA-Public Use
  Company Number: 2008AL007303

PATIENT
  Age: 58 Year
  Sex: Male

DRUGS (11)
  1. DIGOXIN [Suspect]
     Indication: CARDIAC DISORDER
     Dosage: 0.125 MG, DAILY, PO
     Route: 048
     Dates: start: 20031201
  2. PROTONIX [Concomitant]
  3. REGLAN [Concomitant]
  4. CAPTOPRIL [Concomitant]
  5. COREG [Concomitant]
  6. PLAVIX [Concomitant]
  7. ASPARIN [Concomitant]
  8. SPIRONOLACTONE [Concomitant]
  9. LASIX [Concomitant]
  10. ZETIA [Concomitant]
  11. GLIPIZIDE [Concomitant]

REACTIONS (2)
  - FEELING COLD [None]
  - MYOCARDIAL INFARCTION [None]
